FAERS Safety Report 6261179-2 (Version None)
Quarter: 2009Q3

REPORT INFORMATION
  Report Type: 
  Country: None (occurrence: None)
  Receive Date: 20090709
  Receipt Date: 20080807
  Transmission Date: 20100115
  Serious: No
  Sender: FDA-Public Use
  Company Number: US-KINGPHARMUSA00001-K200800938

PATIENT
  Sex: Female

DRUGS (1)
  1. LEVOXYL [Suspect]
     Dates: start: 20070101, end: 20080601

REACTIONS (7)
  - ALOPECIA [None]
  - HEADACHE [None]
  - HOT FLUSH [None]
  - NAUSEA [None]
  - NERVOUSNESS [None]
  - TEMPERATURE INTOLERANCE [None]
  - TREMOR [None]
